FAERS Safety Report 5368340-X (Version None)
Quarter: 2007Q2

REPORT INFORMATION
  Report Type: 
  Country: None (occurrence: None)
  Receive Date: 20070619
  Receipt Date: 20070611
  Transmission Date: 20071010
  Serious: Yes (Other)
  Sender: FDA-Public Use
  Company Number: L07-POL-02553-01

PATIENT
  Age: 71 Year
  Sex: Female

DRUGS (5)
  1. CARBAMAZEPINE [Suspect]
  2. LITHIUM CARBONATE [Suspect]
     Dosage: 1000 MG
  3. NONSTEROIDAL ANTIINFLAMMATORY AGENTS [Suspect]
  4. FUROSEMIDE [Suspect]
  5. DIGOXIN [Suspect]

REACTIONS (8)
  - ASTHENIA [None]
  - BRADYCARDIA [None]
  - CARDIAC DISORDER [None]
  - DRUG INTERACTION [None]
  - HYPOTONIA [None]
  - MENTAL DISORDER [None]
  - NERVOUS SYSTEM DISORDER [None]
  - THERAPEUTIC AGENT TOXICITY [None]
